FAERS Safety Report 6106822-3 (Version None)
Quarter: 2009Q1

REPORT INFORMATION
  Report Type: 
  Country: None (occurrence: None)
  Receive Date: 20090304
  Receipt Date: 20090217
  Transmission Date: 20090719
  Serious: Yes (Disabling)
  Sender: FDA-Public Use
  Company Number: 2009000456

PATIENT
  Age: 70 Year
  Sex: Male

DRUGS (6)
  1. TARCEVA [Suspect]
     Indication: NON-SMALL CELL LUNG CANCER
     Dosage: (150 MG, QD), ORAL
     Route: 048
     Dates: start: 20080726, end: 20081004
  2. TARCEVA [Suspect]
     Indication: NON-SMALL CELL LUNG CANCER
     Dosage: (150 MG, QD), ORAL
     Route: 048
     Dates: start: 20081016
  3. OXYCODONE HCL [Concomitant]
  4. AMLODIPINE [Concomitant]
  5. ENSURE (ENSURE) [Concomitant]
  6. OMEPRAZOLE [Concomitant]

REACTIONS (3)
  - DERMATITIS ACNEIFORM [None]
  - GASTROENTERITIS [None]
  - PALMAR-PLANTAR ERYTHRODYSAESTHESIA SYNDROME [None]
